FAERS Safety Report 20099142 (Version 6)
Quarter: 2021Q4

REPORT INFORMATION
  Report Type: Spontaneous
  Country: US (occurrence: US)
  Receive Date: 20211122
  Receipt Date: 20211126
  Transmission Date: 20220303
  Serious: Yes (Other)
  Sender: FDA-Public Use
  Company Number: US-CELGENE-USA-20211104130

PATIENT
  Sex: Female
  Weight: 85.5 kg

DRUGS (1)
  1. ABECMA [Suspect]
     Active Substance: IDECABTAGENE VICLEUCEL
     Indication: Plasma cell myeloma
     Route: 041

REACTIONS (3)
  - Pancytopenia [Not Recovered/Not Resolved]
  - Cytokine release syndrome [Unknown]
  - Erythema nodosum [Unknown]
